FAERS Safety Report 6457305-2 (Version None)
Quarter: 2009Q4

REPORT INFORMATION
  Report Type: 
  Country: None (occurrence: None)
  Receive Date: 20091125
  Receipt Date: 20091117
  Transmission Date: 20100525
  Serious: Yes (Hospitalization)
  Sender: FDA-Public Use
  Company Number: GB-BAXTER-2009BH017808

PATIENT
  Age: 37 Year
  Sex: Male

DRUGS (6)
  1. GENTAMICIN [Suspect]
     Indication: NEUTROPENIC SEPSIS
     Route: 042
     Dates: start: 20080101, end: 20080101
  2. METRONIDAZOLE [Suspect]
     Indication: NEUTROPENIC SEPSIS
     Route: 042
     Dates: start: 20080101, end: 20080101
  3. CIPROFLOXACIN REDIBAG [Suspect]
     Indication: NEUTROPENIC SEPSIS
     Route: 042
     Dates: start: 20080101, end: 20080101
  4. AMOXICILLIN [Suspect]
     Indication: TOOTH INFECTION
     Route: 048
     Dates: start: 20080101, end: 20080101
  5. CLINDAMYCIN [Suspect]
     Indication: NEUTROPENIC SEPSIS
     Route: 065
     Dates: start: 20080101, end: 20080101
  6. TAZOCIN [Suspect]
     Indication: NEUTROPENIC SEPSIS
     Route: 065
     Dates: start: 20080101, end: 20080101

REACTIONS (1)
  - DRUG RASH WITH EOSINOPHILIA AND SYSTEMIC SYMPTOMS [None]
